FAERS Safety Report 5935999-5 (Version None)
Quarter: 2008Q4

REPORT INFORMATION
  Report Type: 
  Country: None (occurrence: None)
  Receive Date: 20081029
  Receipt Date: 20081029
  Transmission Date: 20090506
  Serious: Yes (Other)
  Sender: FDA-Public Use
  Company Number: None

PATIENT
  Age: 71 Year
  Sex: Male
  Weight: 90.7194 kg

DRUGS (1)
  1. LIQUITEARS MAJOR PHARMACEUTICALS [Suspect]
     Indication: DRY EYE
     Dosage: 2 DROPS DAILY OPHTHALMIC
     Route: 047
     Dates: start: 20081025, end: 20081025

REACTIONS (3)
  - EYE DISORDER [None]
  - INSTILLATION SITE IRRITATION [None]
  - INSTILLATION SITE PAIN [None]
